FAERS Safety Report 16595930 (Version 1)
Quarter: 2019Q3

REPORT INFORMATION
  Report Type: Spontaneous
  Country: DZ (occurrence: DZ)
  Receive Date: 20190719
  Receipt Date: 20190719
  Transmission Date: 20191004
  Serious: Yes (Death)
  Sender: FDA-Public Use
  Company Number: DZ-SA-2019SA194184

PATIENT
  Age: 7 Month
  Sex: Male

DRUGS (1)
  1. MYOZYME [Suspect]
     Active Substance: ALGLUCOSIDASE ALFA
     Dosage: UNK, UNK, UNK
     Route: 065
     Dates: start: 201903

REACTIONS (1)
  - Glycogen storage disease type II [Fatal]
